FAERS Safety Report 9395113 (Version 2)
Quarter: 2013Q3

REPORT INFORMATION
  Report Type: Report from Study
  Country: AU (occurrence: AU)
  Receive Date: 20130711
  Receipt Date: 20130913
  Transmission Date: 20140515
  Serious: Yes (Other)
  Sender: FDA-Public Use
  Company Number: PHHY2013AU073706

PATIENT
  Sex: Female

DRUGS (21)
  1. ACLASTA [Suspect]
     Dosage: 5 MG/100ML
     Route: 042
     Dates: start: 20100623
  2. ACLASTA [Suspect]
     Dosage: 5 MG/100ML
     Route: 042
     Dates: start: 20110726
  3. ACLASTA [Suspect]
     Dosage: 5 MG/100ML
     Route: 042
     Dates: start: 20120713
  4. BACTROBAN//MUPIROCIN CALCIUM [Concomitant]
     Dosage: 2 % (20MG/G), APPLY TID
     Route: 061
  5. BOOSTRIX [Concomitant]
     Dosage: (M.D.U)
     Route: 030
  6. CAPADEX [Concomitant]
     Dosage: 1- 2 DF, TID  (M.D.U)
     Route: 048
  7. KEFLEX//CEFALEXIN MONOHYDRATE [Concomitant]
     Dosage: 1 DF, TID
     Route: 048
  8. KLACID//CLARITHROMYCIN [Concomitant]
     Dosage: 1 DF, BID
     Route: 048
  9. LASIX [Concomitant]
     Dosage: 1-2 DF, PRN DAILY
  10. LYRICA [Concomitant]
     Dosage: 1 DF, BID
     Route: 048
  11. MURELAX [Concomitant]
     Dosage: 0.5 TO 1 TABLET NOCTE
     Route: 048
  12. NASONEX [Concomitant]
     Dosage: 50 UG/ACTUATI  (M.D.U)
  13. NEXIUM//ESOMEPRAZOLE MAGNESIUM [Concomitant]
     Dosage: 1 DF, DAILY
     Route: 048
  14. OROXINE [Concomitant]
     Indication: HYPOTHYROIDISM
     Dosage: 1 DF, MANE
     Route: 048
  15. OTOCOMB OTIC [Concomitant]
     Dosage: 0.1%-0.25%  (M.D.U)
  16. PANADOL OSTEO [Concomitant]
     Dosage: 2 DF, TID
     Route: 048
  17. RULIDE [Concomitant]
     Dosage: 1 DF, BID
     Route: 048
  18. STEMETIL//PROCHLORPERAZINE MALEATE [Concomitant]
     Dosage: 1 DF (M.D.U)
     Route: 048
  19. SYMBICORT [Concomitant]
     Dosage: 1 DF, BID
  20. SYSTANE [Concomitant]
     Indication: DRY EYE
     Dosage: 4-3 MG/ML (M.D.U)
  21. VENTOLIN                           /00942701/ [Concomitant]
     Dosage: 100 UG/DOSE (M.D.U)

REACTIONS (7)
  - Ligament injury [Unknown]
  - Arthritis infective [Unknown]
  - Arthropathy [Unknown]
  - Intervertebral disc space narrowing [Unknown]
  - Vertebral foraminal stenosis [Unknown]
  - Anaemia postoperative [Unknown]
  - Arthralgia [Unknown]
